FAERS Safety Report 13145144 (Version 1)
Quarter: 2017Q1

REPORT INFORMATION
  Report Type: Spontaneous
  Country: US (occurrence: US)
  Receive Date: 20170124
  Receipt Date: 20170124
  Transmission Date: 20170428
  Serious: Yes (Death)
  Sender: FDA-Public Use
  Company Number: US-PFIZER INC-2017029014

PATIENT
  Age: 53 Year
  Sex: Female

DRUGS (6)
  1. PROMETHAZINE HCL [Suspect]
     Active Substance: PROMETHAZINE HYDROCHLORIDE
     Dosage: UNK
     Route: 048
  2. OXYCODONE [Suspect]
     Active Substance: OXYCODONE
     Dosage: UNK
     Route: 048
  3. TRAMADOL. [Suspect]
     Active Substance: TRAMADOL
     Dosage: UNK
     Route: 048
  4. LEVOTHYROXINE SODIUM. [Suspect]
     Active Substance: LEVOTHYROXINE SODIUM
     Dosage: UNK
     Route: 048
  5. ZOLPIDEM [Suspect]
     Active Substance: ZOLPIDEM\ZOLPIDEM TARTRATE
     Dosage: UNK
     Route: 048
  6. ACETAMINOPHEN / OXYCODONE [Suspect]
     Active Substance: ACETAMINOPHEN\OXYCODONE HYDROCHLORIDE
     Dosage: UNK
     Route: 048

REACTIONS (1)
  - Completed suicide [Fatal]

NARRATIVE: CASE EVENT DATE: 2015
